FAERS Safety Report 25469360 (Version 2)
Quarter: 2025Q3

REPORT INFORMATION
  Report Type: Spontaneous
  Country: US (occurrence: US)
  Receive Date: 20250623
  Receipt Date: 20250919
  Transmission Date: 20251021
  Serious: No
  Sender: CALLIDITAS THERAPEUTICS AB
  Company Number: US-Calliditas-2025CAL01727

PATIENT
  Age: 40 Year
  Sex: Female

DRUGS (32)
  1. TARPEYO [Suspect]
     Active Substance: BUDESONIDE
     Indication: IgA nephropathy
     Route: 048
     Dates: start: 20240610
  2. BREXPIPRAZOLE [Concomitant]
     Active Substance: BREXPIPRAZOLE
  3. RIZATRIPTAN [Concomitant]
     Active Substance: RIZATRIPTAN
  4. PROMETHAZINE [Concomitant]
     Active Substance: PROMETHAZINE HYDROCHLORIDE
  5. ALBUTEROL SULFATE [Concomitant]
     Active Substance: ALBUTEROL SULFATE
  6. ATENOLOL [Concomitant]
     Active Substance: ATENOLOL
  7. NUVARING [Concomitant]
     Active Substance: ETHINYL ESTRADIOL\ETONOGESTREL
  8. PEPCID [Concomitant]
     Active Substance: FAMOTIDINE
  9. FARXIGA [Concomitant]
     Active Substance: DAPAGLIFLOZIN PROPANEDIOL
  10. GABAPENTIN [Concomitant]
     Active Substance: GABAPENTIN
  11. DUONEB [Concomitant]
     Active Substance: ALBUTEROL SULFATE\IPRATROPIUM BROMIDE
  12. WELLBUTRIN XL [Concomitant]
     Active Substance: BUPROPION HYDROCHLORIDE
  13. CLONIDINE [Concomitant]
     Active Substance: CLONIDINE
  14. COSENTYX [Concomitant]
     Active Substance: SECUKINUMAB
  15. AVAPRO [Concomitant]
     Active Substance: IRBESARTAN
  16. LAMICTAL [Concomitant]
     Active Substance: LAMOTRIGINE
  17. SINGULAIR [Concomitant]
     Active Substance: MONTELUKAST SODIUM
  18. ZOFRAN [Concomitant]
     Active Substance: ONDANSETRON HYDROCHLORIDE
  19. LINZESS [Concomitant]
     Active Substance: LINACLOTIDE
  20. LACTULOSE [Concomitant]
     Active Substance: LACTULOSE
  21. VYVANSE [Concomitant]
     Active Substance: LISDEXAMFETAMINE DIMESYLATE
  22. TRIAMCINOLONE [Concomitant]
     Active Substance: TRIAMCINOLONE
  23. TORSEMIDE [Concomitant]
     Active Substance: TORSEMIDE
  24. STRATTERA [Concomitant]
     Active Substance: ATOMOXETINE HYDROCHLORIDE
  25. SIMPONI ARIA [Concomitant]
     Active Substance: GOLIMUMAB
  26. POTASSIUM CHLORIDE [Concomitant]
     Active Substance: POTASSIUM CHLORIDE
  27. ACETAMINOPHEN\OXYCODONE HYDROCHLORIDE\OXYCODONE TEREPHTHALATE [Concomitant]
     Active Substance: ACETAMINOPHEN\OXYCODONE HYDROCHLORIDE\OXYCODONE TEREPHTHALATE
  28. NYSTATIN [Concomitant]
     Active Substance: NYSTATIN
  29. METAXALONE [Concomitant]
     Active Substance: METAXALONE
  30. MECLIZINE [Concomitant]
     Active Substance: MECLIZINE HYDROCHLORIDE
  31. IPRATROPIUM [Concomitant]
     Active Substance: IPRATROPIUM
  32. CEFIXIME [Concomitant]
     Active Substance: CEFIXIME

REACTIONS (11)
  - Abdominal pain [Not Recovered/Not Resolved]
  - Flank pain [Not Recovered/Not Resolved]
  - Arthralgia [Not Recovered/Not Resolved]
  - Pain in extremity [Not Recovered/Not Resolved]
  - Neurological symptom [Not Recovered/Not Resolved]
  - Ligament rupture [Unknown]
  - Nausea [Unknown]
  - Dizziness [Unknown]
  - Myalgia [Unknown]
  - Malaise [Unknown]
  - Vomiting [Unknown]

NARRATIVE: CASE EVENT DATE: 20250909
